FAERS Safety Report 18403942 (Version 3)
Quarter: 2020Q4

REPORT INFORMATION
  Report Type: Spontaneous
  Country: US (occurrence: US)
  Receive Date: 20201020
  Receipt Date: 20201103
  Transmission Date: 20210114
  Serious: Yes (Death, Hospitalization, Other)
  Sender: FDA-Public Use
  Company Number: US-PFIZER INC-2020402678

PATIENT
  Age: 64 Year
  Sex: Male

DRUGS (10)
  1. VANCOMYCIN HCL [Suspect]
     Active Substance: VANCOMYCIN HYDROCHLORIDE
     Indication: LUNG INFILTRATION
     Dosage: UNK
  2. OSELTAMIVIR [Suspect]
     Active Substance: OSELTAMIVIR
     Indication: PNEUMONIA INFLUENZAL
     Dosage: UNK
  3. LEVOFLOXACIN. [Suspect]
     Active Substance: LEVOFLOXACIN
     Indication: LUNG INFILTRATION
     Dosage: UNK
  4. METHIMAZOLE. [Concomitant]
     Active Substance: METHIMAZOLE
     Indication: THYROTOXIC CRISIS
     Dosage: UNK
  5. FLUCONAZOLE. [Suspect]
     Active Substance: FLUCONAZOLE
     Indication: LUNG INFILTRATION
     Dosage: UNK
  6. DOXYCYCLINE HYCLATE. [Suspect]
     Active Substance: DOXYCYCLINE HYCLATE
     Indication: PNEUMONIA
     Dosage: UNK
  7. PROPRANOLOL [Concomitant]
     Active Substance: PROPRANOLOL HYDROCHLORIDE
     Indication: THYROTOXIC CRISIS
     Dosage: UNK
  8. AMPHOTERICIN B. [Suspect]
     Active Substance: AMPHOTERICIN B
     Indication: PNEUMONIA BLASTOMYCES
     Dosage: UNK
     Route: 042
  9. PIPERACILLIN/TAZOBACTAM [Suspect]
     Active Substance: PIPERACILLIN SODIUM\TAZOBACTAM SODIUM
     Indication: LUNG INFILTRATION
     Dosage: UNK
  10. CEFTRIAXONE. [Suspect]
     Active Substance: CEFTRIAXONE
     Indication: PNEUMONIA
     Dosage: UNK

REACTIONS (3)
  - Drug ineffective [Fatal]
  - Acute respiratory distress syndrome [Fatal]
  - Septic shock [Fatal]
